FAERS Safety Report 4589686-9 (Version None)
Quarter: 2005Q1

REPORT INFORMATION
  Report Type: 
  Country: None (occurrence: None)
  Receive Date: 20050217
  Receipt Date: 20050204
  Transmission Date: 20050727
  Serious: Yes (Hospitalization)
  Sender: FDA-Public Use
  Company Number: 2005AP00860

PATIENT
  Age: 81 Year
  Sex: Male

DRUGS (8)
  1. ATACAND [Suspect]
     Indication: CARDIAC FAILURE CONGESTIVE
     Dosage: 8 MG DAILY PO
     Route: 048
  2. LANOXIN [Suspect]
     Indication: ARRHYTHMIA
     Dosage: 62 UG DAILY PO
     Route: 048
  3. ASPIRIN [Concomitant]
  4. NIFEDIPINE [Concomitant]
  5. METOPROLOL TARTRATE [Concomitant]
  6. RANITIDINE [Concomitant]
  7. ATORVASTATIN [Concomitant]
  8. FGF TABS [Concomitant]

REACTIONS (4)
  - NAUSEA [None]
  - RENAL IMPAIRMENT [None]
  - THERAPEUTIC AGENT TOXICITY [None]
  - VOMITING [None]
